FAERS Safety Report 18273384 (Version 1)
Quarter: 2020Q3

REPORT INFORMATION
  Report Type: Spontaneous
  Country: US (occurrence: US)
  Receive Date: 20200916
  Receipt Date: 20200916
  Transmission Date: 20201103
  Serious: No
  Sender: FDA-Public Use
  Company Number: US-THERAPEUTICSMD-2020TMD03035

PATIENT
  Sex: Female

DRUGS (2)
  1. IMVEXXY [Suspect]
     Active Substance: ESTRADIOL
     Dosage: UNK
  2. LOMAIRA [Suspect]
     Active Substance: PHENTERMINE HYDROCHLORIDE
     Dosage: UNK

REACTIONS (1)
  - Rash [Not Recovered/Not Resolved]
